FAERS Safety Report 12929228 (Version 7)
Quarter: 2017Q2

REPORT INFORMATION
  Report Type: Spontaneous
  Country: US (occurrence: US)
  Receive Date: 20161110
  Receipt Date: 20170626
  Transmission Date: 20170830
  Serious: No
  Sender: FDA-Public Use
  Company Number: US-PFIZER INC-2016521116

PATIENT

DRUGS (2)
  1. DEXTROSE. [Suspect]
     Active Substance: DEXTROSE
     Dosage: 50% 25GM SYRINGE
  2. DEXTROSE. [Suspect]
     Active Substance: DEXTROSE
     Dosage: 50 %, UNK

REACTIONS (2)
  - Product quality issue [Unknown]
  - Laceration [Unknown]

NARRATIVE: CASE EVENT DATE: 20161201
